FAERS Safety Report 26185925 (Version 1)
Quarter: 2025Q4

REPORT INFORMATION
  Report Type: Spontaneous
  Country: US (occurrence: US)
  Receive Date: 20251222
  Receipt Date: 20251222
  Transmission Date: 20260117
  Serious: No
  Sender: MYLAN
  Company Number: US-MYLANLABS-2025M1107201

PATIENT
  Sex: Female

DRUGS (4)
  1. NEURONTIN [Suspect]
     Active Substance: GABAPENTIN
     Indication: Pain in extremity
     Dosage: 100 MILLIGRAM, PRN ((DAILY AS NEEDED)
     Route: 061
  2. NEURONTIN [Suspect]
     Active Substance: GABAPENTIN
     Dosage: 100 MILLIGRAM, PRN ((DAILY AS NEEDED)
     Route: 048
  3. NEURONTIN [Suspect]
     Active Substance: GABAPENTIN
     Dosage: 100 MILLIGRAM, PRN ((DAILY AS NEEDED)
     Route: 048
  4. NEURONTIN [Suspect]
     Active Substance: GABAPENTIN
     Dosage: 100 MILLIGRAM, PRN ((DAILY AS NEEDED)
     Route: 061

REACTIONS (1)
  - Product use in unapproved indication [Unknown]
